FAERS Safety Report 13301007 (Version 2)
Quarter: 2017Q1

REPORT INFORMATION
  Report Type: Report from Study
  Country: TN (occurrence: TN)
  Receive Date: 20170307
  Receipt Date: 20170310
  Transmission Date: 20170428
  Serious: Yes (Other)
  Sender: FDA-Public Use
  Company Number: TN-ROCHE-1902794

PATIENT
  Sex: Female
  Weight: 70 kg

DRUGS (1)
  1. HERCEPTIN [Suspect]
     Active Substance: TRASTUZUMAB
     Indication: BREAST CANCER
     Route: 042
     Dates: start: 20160807, end: 20161212

REACTIONS (3)
  - Confusional state [Unknown]
  - Chest pain [Unknown]
  - Erythema [Unknown]
